FAERS Safety Report 13184640 (Version 2)
Quarter: 2017Q1

REPORT INFORMATION
  Report Type: Report from Study
  Country: US (occurrence: US)
  Receive Date: 20170203
  Receipt Date: 20170206
  Transmission Date: 20170428
  Serious: No
  Sender: FDA-Public Use
  Company Number: US-AMGEN-USASL2017015422

PATIENT
  Age: 55 Year
  Sex: Female

DRUGS (1)
  1. ENBREL [Suspect]
     Active Substance: ETANERCEPT
     Indication: RHEUMATOID ARTHRITIS
     Dosage: 50 MG, QWK
     Route: 065

REACTIONS (8)
  - Rash [Unknown]
  - Hypersensitivity [Unknown]
  - Nasopharyngitis [Not Recovered/Not Resolved]
  - Injection site pruritus [Recovering/Resolving]
  - Upper respiratory tract infection [Unknown]
  - White blood cell count increased [Unknown]
  - Contusion [Unknown]
  - Injection site swelling [Recovering/Resolving]

NARRATIVE: CASE EVENT DATE: 201701
